FAERS Safety Report 5643945-7 (Version None)
Quarter: 2008Q1

REPORT INFORMATION
  Report Type: 
  Country: None (occurrence: None)
  Receive Date: 20080226
  Receipt Date: 20080215
  Transmission Date: 20080703
  Serious: Yes (Hospitalization, Other)
  Sender: FDA-Public Use
  Company Number: 2007US000322

PATIENT
  Age: 79 Year
  Sex: Female

DRUGS (18)
  1. AMEVIVE(AMEVIVE) AMEVIVE(ALEFACEPT) INJECTION [Suspect]
     Indication: PSORIASIS
     Dosage: 15 MG, WEEKLY, INTRAMUSCULAR
     Route: 030
     Dates: start: 20030910, end: 20041215
  2. VANCOMYCIN [Concomitant]
  3. PROTONIX [Concomitant]
  4. LASIX [Concomitant]
  5. SYNTHROID [Concomitant]
  6. COZAAR [Concomitant]
  7. OXYCONTIN [Concomitant]
  8. VICODIN (HYDROCODONE BITATRATE) [Concomitant]
  9. AMBIEN [Concomitant]
  10. LEXAPRO [Concomitant]
  11. WELLBUTRIN [Concomitant]
  12. ATENOLOL [Concomitant]
  13. NAMENDA [Concomitant]
  14. ARICEPT [Concomitant]
  15. ATIVAN [Concomitant]
  16. CYMBALTA [Concomitant]
  17. ROCEPHIN [Concomitant]
  18. LEVAQUIN [Concomitant]

REACTIONS (10)
  - BLOOD POTASSIUM DECREASED [None]
  - CARDIAC FAILURE CONGESTIVE [None]
  - CONDITION AGGRAVATED [None]
  - ENTEROBACTER INFECTION [None]
  - HYPOTENSION [None]
  - POST PROCEDURAL HAEMATOMA [None]
  - RETROPERITONEAL HAEMATOMA [None]
  - RETROPERITONEAL HAEMORRHAGE [None]
  - STAPHYLOCOCCAL INFECTION [None]
  - WOUND INFECTION [None]
